FAERS Safety Report 17213547 (Version 6)
Quarter: 2021Q1

REPORT INFORMATION
  Report Type: Report from Study
  Country: None (occurrence: US)
  Receive Date: 20191230
  Receipt Date: 20210214
  Transmission Date: 20210419
  Serious: Yes (Other)
  Sender: FDA-Public Use
  Company Number: US-ABBVIE-19K-163-3213108-00

PATIENT
  Age: 58 Year
  Sex: Female
  Weight: 77.18 kg

DRUGS (10)
  1. HUMIRA [Suspect]
     Active Substance: ADALIMUMAB
     Indication: CROHN^S DISEASE
     Dosage: CITRATE FREE
     Route: 058
     Dates: start: 201412, end: 201912
  2. OXYBUTYNIN CHLORIDE. [Concomitant]
     Active Substance: OXYBUTYNIN CHLORIDE
     Indication: PRODUCT USED FOR UNKNOWN INDICATION
     Dosage: 5 MILLIGRAM PER 5 MILLITER
  3. COLESTIPOL HCL [Concomitant]
     Active Substance: COLESTIPOL HYDROCHLORIDE
     Indication: PRODUCT USED FOR UNKNOWN INDICATION
  4. HUMIRA [Suspect]
     Active Substance: ADALIMUMAB
     Indication: CROHN^S DISEASE
     Dosage: CITRATE FREE
     Route: 058
     Dates: start: 20191226
  5. FIBER [Concomitant]
     Active Substance: PSYLLIUM HUSK
     Indication: PRODUCT USED FOR UNKNOWN INDICATION
     Dosage: 3.4 GRAMS PER 5.8 GRAMS POWDER.
  6. HUMIRA [Suspect]
     Active Substance: ADALIMUMAB
     Indication: CROHN^S DISEASE
     Route: 058
     Dates: start: 2015
  7. FISH OIL [Concomitant]
     Active Substance: FISH OIL
     Indication: PRODUCT USED FOR UNKNOWN INDICATION
     Dosage: 100 TO 150 MILLIGRAM CAPSULE
  8. TURMERIC [Concomitant]
     Active Substance: HERBALS\TURMERIC
     Indication: PRODUCT USED FOR UNKNOWN INDICATION
  9. PROBIOTICS [Concomitant]
     Active Substance: PROBIOTICS NOS
     Indication: PRODUCT USED FOR UNKNOWN INDICATION
     Dosage: 10B CELL CAPSULE
  10. HUMIRA [Suspect]
     Active Substance: ADALIMUMAB
     Dosage: CITRATE FREE
     Route: 058

REACTIONS (6)
  - Exostosis [Recovering/Resolving]
  - Pollakiuria [Not Recovered/Not Resolved]
  - Frequent bowel movements [Unknown]
  - Arthritis [Unknown]
  - Weight increased [Not Recovered/Not Resolved]
  - Blood cholesterol increased [Unknown]

NARRATIVE: CASE EVENT DATE: 2019
